FAERS Safety Report 7301728-6 (Version None)
Quarter: 2011Q1

REPORT INFORMATION
  Report Type: 
  Country: None (occurrence: None)
  Receive Date: 20110218
  Receipt Date: 20110214
  Transmission Date: 20110831
  Serious: Yes (Congenital Anomaly)
  Sender: FDA-Public Use
  Company Number: A0685045A

PATIENT
  Sex: Male
  Weight: 2.7 kg

DRUGS (5)
  1. STADOL [Concomitant]
     Route: 064
     Dates: start: 20041129
  2. PAXIL [Suspect]
     Indication: DEPRESSION
     Route: 064
     Dates: start: 20030101
  3. ALBUTEROL [Concomitant]
  4. PRENATAL VITAMINS [Concomitant]
     Indication: PREGNANCY
     Route: 064
  5. EPIDURAL [Concomitant]

REACTIONS (3)
  - DRUG EXPOSURE DURING PREGNANCY [None]
  - CONGENITAL NAEVUS [None]
  - ATRIAL SEPTAL DEFECT [None]
